FAERS Safety Report 12891695 (Version 5)
Quarter: 2016Q4

REPORT INFORMATION
  Report Type: Report from Study
  Country: FR (occurrence: FR)
  Receive Date: 20161028
  Receipt Date: 20161221
  Transmission Date: 20170207
  Serious: Yes (Death, Hospitalization, Other)
  Sender: FDA-Public Use
  Company Number: FR-BRISTOL-MYERS SQUIBB COMPANY-BMS-2016-090487

PATIENT
  Age: 47 Year
  Sex: Male
  Weight: 56 kg

DRUGS (18)
  1. METRONIDAZOLE. [Concomitant]
     Active Substance: METRONIDAZOLE
     Indication: COLITIS
     Route: 065
  2. CIFLOX                             /00697201/ [Concomitant]
     Active Substance: CIPROFLOXACIN
     Indication: PRODUCT USED FOR UNKNOWN INDICATION
     Dosage: UNK
     Route: 065
     Dates: start: 20141114, end: 20141115
  3. VANCOMYCINE [Concomitant]
     Active Substance: VANCOMYCIN
     Indication: COLITIS
     Route: 065
  4. IVHEBEX [Concomitant]
     Indication: HEPATITIS B
     Dosage: 1 DF, UNK
     Route: 065
     Dates: start: 20111027
  5. PROGRAF [Concomitant]
     Active Substance: TACROLIMUS\TACROLIMUS ANHYDROUS
     Indication: LIVER TRANSPLANT
     Dosage: 6.5 MG, BID
     Route: 042
     Dates: start: 20111027
  6. IMUREL                             /00001501/ [Concomitant]
     Active Substance: AZATHIOPRINE SODIUM
     Indication: PRODUCT USED FOR UNKNOWN INDICATION
     Dosage: 50 MG, UNK
     Route: 048
     Dates: start: 201507
  7. KARDEGIC [Concomitant]
     Active Substance: ASPIRIN LYSINE
     Indication: PRODUCT USED FOR UNKNOWN INDICATION
     Dosage: 75 MG, QD
     Route: 065
     Dates: start: 20111201
  8. IMUREL                             /00001501/ [Concomitant]
     Active Substance: AZATHIOPRINE SODIUM
     Indication: LIVER TRANSPLANT
     Dosage: 100 MG, UNK
     Route: 048
     Dates: start: 201507
  9. ADVAGRAF [Concomitant]
     Active Substance: TACROLIMUS
     Indication: LIVER TRANSPLANT
     Dosage: 5 MG, QD
     Route: 065
     Dates: start: 20111027
  10. EPO                                /00909301/ [Concomitant]
     Active Substance: ERYTHROPOIETIN
     Indication: ANAEMIA
     Dosage: UNK UNK, QWK
     Route: 065
  11. CORTANCYL [Concomitant]
     Active Substance: PREDNISONE
     Indication: LIVER TRANSPLANT
     Dosage: 5 MG, QD
     Route: 065
     Dates: start: 20111027
  12. GRANOCYTE [Concomitant]
     Active Substance: LENOGRASTIM
     Indication: PRODUCT USED FOR UNKNOWN INDICATION
     Dosage: 1 DF, QWK
     Route: 065
  13. VFEND [Concomitant]
     Active Substance: VORICONAZOLE
     Indication: PRODUCT USED FOR UNKNOWN INDICATION
     Dosage: 200 MG, BID
     Route: 065
     Dates: end: 20150804
  14. AUGMENTIN [Concomitant]
     Active Substance: AMOXICILLIN\CLAVULANATE POTASSIUM
     Indication: PRODUCT USED FOR UNKNOWN INDICATION
     Dosage: 1 G, TID
     Route: 065
  15. BARACLUDE [Suspect]
     Active Substance: ENTECAVIR
     Indication: HEPATITIS B
     Dosage: 1 TAB, QD
     Route: 048
     Dates: start: 20071109
  16. CELLCEPT [Concomitant]
     Active Substance: MYCOPHENOLATE MOFETIL\MYCOPHENOLATE MOFETIL HYDROCHLORIDE
     Indication: LIVER TRANSPLANT
     Dosage: 500 MG, BID
     Route: 065
     Dates: start: 20111027, end: 201507
  17. PROGRAF [Concomitant]
     Active Substance: TACROLIMUS\TACROLIMUS ANHYDROUS
     Indication: PRODUCT USED FOR UNKNOWN INDICATION
     Dosage: 1.2 MG, BID
     Route: 042
     Dates: start: 20111027
  18. AMOXICILLINE                       /00249602/ [Concomitant]
     Active Substance: AMOXICILLIN
     Indication: PRODUCT USED FOR UNKNOWN INDICATION
     Dosage: UNK
     Route: 065
     Dates: start: 20141114, end: 20141115

REACTIONS (22)
  - Weight decreased [Unknown]
  - Thrombophlebitis septic [Unknown]
  - Mucormycosis [Unknown]
  - Nocardiosis [Unknown]
  - Sepsis [Unknown]
  - Diarrhoea [Not Recovered/Not Resolved]
  - Metabolic acidosis [Unknown]
  - Staphylococcal sepsis [Unknown]
  - Bicytopenia [Not Recovered/Not Resolved]
  - Dehydration [Recovered/Resolved]
  - Transplant rejection [Unknown]
  - Lung infection [Unknown]
  - Acute kidney injury [Recovering/Resolving]
  - Packed red blood cell transfusion [Unknown]
  - Pain [Unknown]
  - Arterial compression therapy [Unknown]
  - Anaemia [Unknown]
  - Death [Fatal]
  - Neutropenia [Unknown]
  - Pulmonary embolism [Unknown]
  - Clostridium difficile colitis [Recovering/Resolving]
  - Cell death [Unknown]

NARRATIVE: CASE EVENT DATE: 20141114
